FAERS Safety Report 5937951-2 (Version None)
Quarter: 2008Q4

REPORT INFORMATION
  Report Type: 
  Country: None (occurrence: None)
  Receive Date: 20081031
  Receipt Date: 20081022
  Transmission Date: 20090506
  Serious: Yes (Hospitalization, Congenital Anomaly)
  Sender: FDA-Public Use
  Company Number: US-PFIZER INC-2008049895

PATIENT
  Sex: Female

DRUGS (4)
  1. ZOLOFT [Suspect]
     Indication: ANXIETY
     Dosage: DAILY DOSE:150MG
     Route: 064
  2. ZOLOFT [Suspect]
     Indication: DEPRESSION
  3. VITAMIN TAB [Concomitant]
  4. TYLENOL [Concomitant]
     Dosage: FREQ:AS NEEDED

REACTIONS (5)
  - ANAL ATRESIA [None]
  - CONSTIPATION [None]
  - CRYING [None]
  - DRUG EXPOSURE DURING PREGNANCY [None]
  - FLATULENCE [None]
